FAERS Safety Report 4599328-4 (Version None)
Quarter: 2005Q1

REPORT INFORMATION
  Report Type: 
  Country: None (occurrence: None)
  Receive Date: 20050302
  Receipt Date: 20050302
  Transmission Date: 20050727
  Serious: Yes (Other)
  Sender: FDA-Public Use
  Company Number: None

PATIENT
  Age: 22 Year
  Sex: Male
  Weight: 61.2356 kg

DRUGS (2)
  1. OXYCODONE AND ACETAMINOPHEN [Suspect]
     Indication: OSTEOARTHRITIS
     Dosage: 5/325 PO
     Route: 048
     Dates: start: 20040207, end: 20050204
  2. OXYCODONE AND ACETAMINOPHEN [Suspect]
     Indication: SPINAL COLUMN STENOSIS
     Dosage: 5/325 PO
     Route: 048
     Dates: start: 20040207, end: 20050204

REACTIONS (2)
  - ADVERSE DRUG REACTION [None]
  - PHARMACEUTICAL PRODUCT COMPLAINT [None]
